FAERS Safety Report 9354773 (Version 6)
Quarter: 2015Q1

REPORT INFORMATION
  Report Type: Report from Study
  Country: BR (occurrence: BR)
  Receive Date: 20130619
  Receipt Date: 20150302
  Transmission Date: 20150721
  Serious: Yes (Death, Hospitalization, Other)
  Sender: FDA-Public Use
  Company Number: BR-ROCHE-1238415

PATIENT
  Age: 50 Year
  Sex: Female
  Weight: 64 kg

DRUGS (9)
  1. MABTHERA [Suspect]
     Active Substance: RITUXIMAB
     Route: 042
     Dates: start: 20130916
  2. RETINOL [Concomitant]
     Active Substance: RETINOL
  3. TYLEX (BRAZIL) [Concomitant]
  4. MABTHERA [Suspect]
     Active Substance: RITUXIMAB
     Indication: SYSTEMIC LUPUS ERYTHEMATOSUS
     Dosage: MOST RECENT DOSE ON 16/SEP/2013.
     Route: 042
     Dates: start: 20121019
  5. MABTHERA [Suspect]
     Active Substance: RITUXIMAB
     Indication: RHEUMATOID ARTHRITIS
     Route: 042
     Dates: start: 20130306
  6. PREDNISONE. [Concomitant]
     Active Substance: PREDNISONE
  7. OMEPRAZOLE. [Concomitant]
     Active Substance: OMEPRAZOLE
  8. REUQUINOL [Concomitant]
     Active Substance: HYDROXYCHLOROQUINE SULFATE
  9. PURAN [Concomitant]
     Active Substance: LEVOTHYROXINE SODIUM

REACTIONS (12)
  - Pneumonia [Recovered/Resolved]
  - Influenza [Unknown]
  - Vomiting [Unknown]
  - Constipation [Unknown]
  - Skin wound [Fatal]
  - Decreased appetite [Not Recovered/Not Resolved]
  - Dacryostenosis acquired [Not Recovered/Not Resolved]
  - Fatigue [Not Recovered/Not Resolved]
  - Systemic lupus erythematosus [Not Recovered/Not Resolved]
  - Cataract [Not Recovered/Not Resolved]
  - Eye inflammation [Not Recovered/Not Resolved]
  - Hypertension [Unknown]

NARRATIVE: CASE EVENT DATE: 201307
